FAERS Safety Report 18192830 (Version 1)
Quarter: 2020Q3

REPORT INFORMATION
  Report Type: Report from Study
  Country: US (occurrence: US)
  Receive Date: 20200825
  Receipt Date: 20200825
  Transmission Date: 20201103
  Serious: Yes (Other)
  Sender: FDA-Public Use
  Company Number: US-PFIZER INC-2019540314

PATIENT
  Age: 32 Year
  Sex: Female

DRUGS (5)
  1. PREDNISONE. [Suspect]
     Active Substance: PREDNISONE
     Dosage: 1 MILLIGRAM, QD
     Route: 065
  2. ENBREL [Suspect]
     Active Substance: ETANERCEPT
     Indication: RHEUMATOID ARTHRITIS
     Dosage: 50 MILLIGRAM
     Route: 065
  3. METHOTREXATE. [Concomitant]
     Active Substance: METHOTREXATE
     Dosage: UNK
  4. ENBREL [Suspect]
     Active Substance: ETANERCEPT
     Dosage: 25 MILLIGRAM, 2 TIMES/WK
     Route: 065
  5. ENBREL [Suspect]
     Active Substance: ETANERCEPT
     Indication: RHEUMATOID ARTHRITIS
     Dosage: 50 MILLIGRAM
     Route: 065
     Dates: start: 20191205

REACTIONS (19)
  - Pericarditis [Recovering/Resolving]
  - Rhinorrhoea [Unknown]
  - Injection site pruritus [Unknown]
  - Injection site erythema [Unknown]
  - Injury associated with device [Unknown]
  - Injection site reaction [Recovered/Resolved]
  - Fatigue [Not Recovered/Not Resolved]
  - Dyspnoea [Recovering/Resolving]
  - Wrong technique in product usage process [Unknown]
  - Myocarditis [Recovering/Resolving]
  - Rheumatoid arthritis [Unknown]
  - Rubber sensitivity [Unknown]
  - Chest pain [Recovering/Resolving]
  - Nasopharyngitis [Unknown]
  - Injection site bruising [Unknown]
  - Injection site pain [Unknown]
  - Chest discomfort [Recovering/Resolving]
  - Injection site rash [Recovering/Resolving]
  - Injection site swelling [Unknown]

NARRATIVE: CASE EVENT DATE: 201912
